FAERS Safety Report 14254446 (Version 2)
Quarter: 2018Q1

REPORT INFORMATION
  Report Type: Spontaneous
  Country: US (occurrence: US)
  Receive Date: 20171206
  Receipt Date: 20180205
  Transmission Date: 20180508
  Serious: No
  Sender: FDA-Public Use
  Company Number: US-PFIZER INC-2017512196

PATIENT
  Age: 64 Year
  Sex: Female
  Weight: 44.91 kg

DRUGS (1)
  1. NEURONTIN [Suspect]
     Active Substance: GABAPENTIN
     Dosage: 10 DF, 1X/DAY (AT NIGHT-TIME)

REACTIONS (1)
  - Blood pressure increased [Unknown]
